FAERS Safety Report 25537235 (Version 1)
Quarter: 2025Q3

REPORT INFORMATION
  Report Type: Report from Study
  Country: US (occurrence: US)
  Receive Date: 20250710
  Receipt Date: 20250710
  Transmission Date: 20251021
  Serious: Yes (Hospitalization, Other)
  Sender: EMD SERONO INC
  Company Number: US-Merck Healthcare KGaA-2025028513

PATIENT
  Age: 60 Year
  Sex: Female

DRUGS (3)
  1. REBIF [Suspect]
     Active Substance: INTERFERON BETA-1A
     Indication: Multiple sclerosis
     Dates: start: 20250514
  2. MOUNJARO [Suspect]
     Active Substance: TIRZEPATIDE
     Indication: Weight decreased
  3. CLOPIDOGREL [Concomitant]
     Active Substance: CLOPIDOGREL BISULFATE
     Indication: Product used for unknown indication

REACTIONS (14)
  - Haematochezia [Unknown]
  - Impaired gastric emptying [Unknown]
  - Adverse drug reaction [Unknown]
  - Lip pain [Unknown]
  - Lip swelling [Unknown]
  - Pain [Unknown]
  - Hot flush [Unknown]
  - Erythema [Unknown]
  - Headache [Unknown]
  - Limb discomfort [Not Recovered/Not Resolved]
  - Gait disturbance [Unknown]
  - Muscle spasms [Unknown]
  - Tongue discomfort [Unknown]
  - Taste disorder [Unknown]
